FAERS Safety Report 8297822-6 (Version None)
Quarter: 2012Q2

REPORT INFORMATION
  Report Type: 
  Country: None (occurrence: None)
  Receive Date: 20120419
  Receipt Date: 20120412
  Transmission Date: 20120825
  Serious: Yes (Hospitalization, Other)
  Sender: FDA-Public Use
  Company Number: US-BAYER-2011-032752

PATIENT
  Age: 48 Year
  Sex: Female
  Weight: 92 kg

DRUGS (16)
  1. DIAZEPAM [Concomitant]
     Indication: ANXIETY
     Dosage: 5 MG, PRN
     Route: 048
     Dates: start: 20090401, end: 20090420
  2. YAZ [Suspect]
     Dosage: UNK
     Route: 048
     Dates: start: 20071016, end: 20090409
  3. CALCIUM CARBONATE [Concomitant]
     Indication: GASTROOESOPHAGEAL REFLUX DISEASE
     Dosage: 500 MG, PRN
     Route: 048
  4. MELOXICAM [Concomitant]
     Dosage: 15 MG, PRN
  5. ATARAX [Concomitant]
     Indication: ANXIETY
     Dosage: 25 MG, QD
     Route: 048
     Dates: start: 20090401, end: 20090420
  6. CELEBREX [Concomitant]
     Dosage: 200 MG, UNK
  7. NAPROXEN [Concomitant]
     Dosage: 500 MG, BID
  8. DIVALPROEX SODIUM [Concomitant]
     Indication: DEPRESSION
     Dosage: 250 MG, QD
     Route: 048
     Dates: start: 20090401, end: 20090420
  9. SIMVASTATIN [Concomitant]
     Indication: HYPERLIPIDAEMIA
     Dosage: 40 MG, UNK
     Dates: start: 20090401, end: 20090420
  10. GABAPENTIN [Concomitant]
     Indication: DEPRESSION
     Dosage: 300 MCG/24HR, QD
     Route: 048
     Dates: start: 20090401, end: 20090420
  11. DEPAKOTE [Concomitant]
     Dosage: 750 MG, QD
  12. OMEGA-3 FATTY ACIDS [Concomitant]
     Dosage: 2000 MG, QD
  13. RANITIDINE [Concomitant]
     Indication: GASTROOESOPHAGEAL REFLUX DISEASE
     Dosage: 150 MG, PRN
     Route: 048
     Dates: start: 20090401, end: 20090420
  14. NSAID'S [Concomitant]
     Dosage: UNK UNK, PRN
     Dates: start: 20010101, end: 20110101
  15. ZOCOR [Concomitant]
     Dosage: 40 MG, HS
  16. HYDROCODONE BITARTRATE AND ACETAMINOPHEN [Concomitant]
     Indication: PAIN
     Dosage: UNK UNK, PRN
     Route: 048
     Dates: start: 20090401, end: 20090420

REACTIONS (11)
  - DEEP VEIN THROMBOSIS [None]
  - PAIN [None]
  - EMOTIONAL DISTRESS [None]
  - INJURY [None]
  - ANXIETY [None]
  - PULMONARY EMBOLISM [None]
  - CHEST DISCOMFORT [None]
  - DEPRESSION [None]
  - DYSPNOEA [None]
  - BIPOLAR DISORDER [None]
  - ANHEDONIA [None]
